FAERS Safety Report 12723437 (Version 1)
Quarter: 2016Q3

REPORT INFORMATION
  Report Type: Spontaneous
  Country: US (occurrence: US)
  Receive Date: 20160908
  Receipt Date: 20160908
  Transmission Date: 20161109
  Serious: No
  Sender: FDA-Public Use
  Company Number: US-ASTRAZENECA-2016SE92498

PATIENT
  Sex: Male

DRUGS (1)
  1. SYMBICORT [Suspect]
     Active Substance: BUDESONIDE\FORMOTEROL FUMARATE DIHYDRATE
     Indication: COUGH
     Dosage: UNKNOWN
     Route: 055

REACTIONS (8)
  - Intentional product misuse [Unknown]
  - Dyspnoea [Unknown]
  - Dyspepsia [Unknown]
  - Extra dose administered [Unknown]
  - Chest discomfort [Unknown]
  - Diabetes mellitus [Unknown]
  - Malaise [Unknown]
  - Nausea [Unknown]
